FAERS Safety Report 21711307 (Version 1)
Quarter: 2022Q4

REPORT INFORMATION
  Report Type: Spontaneous
  Country: US (occurrence: US)
  Receive Date: 20221212
  Receipt Date: 20221212
  Transmission Date: 20230113
  Serious: No
  Sender: FDA-Public Use
  Company Number: US-LEO Pharma-347177

PATIENT
  Age: 25 Year
  Sex: Female
  Weight: 104 kg

DRUGS (4)
  1. CALCIUM [Concomitant]
     Active Substance: CALCIUM
     Indication: Product used for unknown indication
  2. levoglutamide (l-glutamine) [Concomitant]
     Indication: Product used for unknown indication
  3. DUPIXENT [Suspect]
     Active Substance: DUPILUMAB
     Indication: Dermatitis atopic
  4. ADBRY [Suspect]
     Active Substance: TRALOKINUMAB-LDRM
     Indication: Product used for unknown indication

REACTIONS (7)
  - Pruritus [Unknown]
  - Condition aggravated [Unknown]
  - Drug ineffective [Unknown]
  - Dry skin [Unknown]
  - Sleep disorder [Unknown]
  - Dry skin [Unknown]
  - Skin exfoliation [Unknown]

NARRATIVE: CASE EVENT DATE: 20220801
